FAERS Safety Report 6666432-6 (Version None)
Quarter: 2010Q1

REPORT INFORMATION
  Report Type: 
  Country: None (occurrence: None)
  Receive Date: 20100331
  Receipt Date: 20100320
  Transmission Date: 20100710
  Serious: Yes (Other)
  Sender: FDA-Public Use
  Company Number: 2010AP000563

PATIENT
  Age: 82 Year
  Sex: Female

DRUGS (1)
  1. SOTALOL HCL [Suspect]
     Indication: SINUS RHYTHM
     Dosage: 80 MG; BID;

REACTIONS (3)
  - ATRIAL FIBRILLATION [None]
  - STRESS CARDIOMYOPATHY [None]
  - TACHYCARDIA [None]
